FAERS Safety Report 21129444 (Version 1)
Quarter: 2022Q3

REPORT INFORMATION
  Report Type: Spontaneous
  Country: US (occurrence: US)
  Receive Date: 20220725
  Receipt Date: 20220725
  Transmission Date: 20221027
  Serious: No
  Sender: FDA-Public Use
  Company Number: US-drreddys-SPO/USA/22/0152303

PATIENT
  Age: 21 Year
  Sex: Female

DRUGS (1)
  1. ZENATANE [Suspect]
     Active Substance: ISOTRETINOIN
     Indication: Product used for unknown indication
     Dosage: RMA ISSUE DATE: 4 JANUARY 2022 01:22:33 PM, 3 FEBRUARY 2022 10:29:37 AM, 7 MARCH 2022 12:56:21 PM, 1

REACTIONS (1)
  - Treatment noncompliance [Unknown]
